FAERS Safety Report 6847458-6 (Version None)
Quarter: 2010Q3

REPORT INFORMATION
  Report Type: 
  Country: None (occurrence: None)
  Receive Date: 20100716
  Receipt Date: 20100708
  Transmission Date: 20110219
  Serious: Yes (Hospitalization)
  Sender: FDA-Public Use
  Company Number: FR-ASTRAZENECA-2010SE31888

PATIENT
  Age: 954 Month
  Sex: Male

DRUGS (5)
  1. NEXIUM [Suspect]
     Indication: DYSPEPSIA
     Route: 048
     Dates: start: 20100614, end: 20100615
  2. GAVISCON [Concomitant]
     Dosage: PRN
     Route: 048
     Dates: start: 20100615
  3. ORBENIN CAP [Concomitant]
  4. BACTRIM [Concomitant]
     Route: 048
  5. DAFALGAN [Concomitant]

REACTIONS (2)
  - JAUNDICE [None]
  - TRANSAMINASES INCREASED [None]
